FAERS Safety Report 11663268 (Version 1)
Quarter: 2015Q4

REPORT INFORMATION
  Report Type: Spontaneous
  Country: US (occurrence: US)
  Receive Date: 20151027
  Receipt Date: 20151027
  Transmission Date: 20160304
  Serious: No
  Sender: FDA-Public Use
  Company Number: US-MEDA-2010020033

PATIENT
  Age: 45 Year
  Sex: Female
  Weight: 68 kg

DRUGS (8)
  1. RHINOCORT [Concomitant]
     Active Substance: BUDESONIDE
     Indication: RHINITIS ALLERGIC
  2. ACACIA. [Concomitant]
     Active Substance: ACACIA
     Indication: IRRITABLE BOWEL SYNDROME
     Route: 048
  3. ONSOLIS [Suspect]
     Active Substance: FENTANYL CITRATE
     Indication: BLADDER PAIN
  4. GLYCOLAX [Concomitant]
     Active Substance: POLYETHYLENE GLYCOL 3350
     Indication: CONSTIPATION
     Route: 048
  5. SINGULAIR [Concomitant]
     Active Substance: MONTELUKAST SODIUM
     Indication: RHINITIS ALLERGIC
     Route: 048
  6. ACTIQ [Concomitant]
     Active Substance: FENTANYL CITRATE
     Indication: PAIN
     Dates: start: 20100215
  7. ACTIQ [Concomitant]
     Active Substance: FENTANYL CITRATE
     Indication: PAIN
     Route: 002
     Dates: end: 20100212
  8. METHADONE [Concomitant]
     Active Substance: METHADONE HYDROCHLORIDE
     Indication: PAIN
     Route: 048

REACTIONS (1)
  - Pain [Not Recovered/Not Resolved]

NARRATIVE: CASE EVENT DATE: 20100213
